FAERS Safety Report 7756916-1 (Version None)
Quarter: 2011Q3

REPORT INFORMATION
  Report Type: 
  Country: None (occurrence: None)
  Receive Date: 20110916
  Receipt Date: 20110913
  Transmission Date: 20111222
  Serious: Yes (Death)
  Sender: FDA-Public Use
  Company Number: US-GLAXOSMITHKLINE-A0944692A

PATIENT
  Age: 61 Year
  Sex: Female

DRUGS (7)
  1. TYKERB [Suspect]
     Dosage: 1250MG PER DAY
     Route: 048
     Dates: start: 20110201
  2. ENALAPRIL MALEATE [Concomitant]
  3. POTASSIUM [Concomitant]
  4. PROCHLORPERAZINE [Concomitant]
  5. MORPHINE [Concomitant]
  6. XANAX [Concomitant]
  7. MAGNESIUM OXIDE [Concomitant]

REACTIONS (1)
  - DEATH [None]
